FAERS Safety Report 23351861 (Version 3)
Quarter: 2025Q3

REPORT INFORMATION
  Report Type: Spontaneous
  Country: CN (occurrence: CN)
  Receive Date: 20231229
  Receipt Date: 20250827
  Transmission Date: 20251020
  Serious: Yes (Other)
  Sender: SANOFI AVENTIS
  Company Number: CN-SA-2023SA403539

PATIENT
  Age: 61 Year
  Sex: Male
  Weight: 42 kg

DRUGS (15)
  1. OXALIPLATIN [Suspect]
     Active Substance: OXALIPLATIN
     Indication: Gastric neuroendocrine carcinoma
     Dates: start: 2021, end: 2021
  2. OXALIPLATIN [Suspect]
     Active Substance: OXALIPLATIN
     Indication: Metastases to liver
     Dates: start: 2021, end: 2021
  3. OXALIPLATIN [Suspect]
     Active Substance: OXALIPLATIN
     Indication: Metastases to lymph nodes
     Dates: start: 20220419, end: 20220825
  4. OXALIPLATIN [Suspect]
     Active Substance: OXALIPLATIN
     Dates: start: 20220419, end: 20220825
  5. CAPECITABINE [Suspect]
     Active Substance: CAPECITABINE
     Indication: Metastases to liver
     Dates: start: 2021, end: 2021
  6. CAPECITABINE [Suspect]
     Active Substance: CAPECITABINE
     Indication: Gastric neuroendocrine carcinoma
     Dates: start: 20211025, end: 20220329
  7. CAPECITABINE [Suspect]
     Active Substance: CAPECITABINE
     Indication: Metastases to lymph nodes
     Dates: start: 20220419, end: 20220825
  8. CAPECITABINE [Suspect]
     Active Substance: CAPECITABINE
     Dates: start: 20220419, end: 20220825
  9. LEUCOVORIN CALCIUM [Suspect]
     Active Substance: LEUCOVORIN CALCIUM
     Indication: Gastric neuroendocrine carcinoma
     Dates: start: 2021, end: 2021
  10. LEUCOVORIN CALCIUM [Suspect]
     Active Substance: LEUCOVORIN CALCIUM
     Indication: Metastases to liver
  11. LEUCOVORIN CALCIUM [Suspect]
     Active Substance: LEUCOVORIN CALCIUM
     Indication: Metastases to lymph nodes
  12. FLUOROURACIL [Suspect]
     Active Substance: FLUOROURACIL
     Indication: Gastric neuroendocrine carcinoma
     Dates: start: 2021, end: 2021
  13. FLUOROURACIL [Suspect]
     Active Substance: FLUOROURACIL
     Indication: Metastases to liver
  14. FLUOROURACIL [Suspect]
     Active Substance: FLUOROURACIL
     Indication: Metastases to lymph nodes
  15. SINTILIMAB [Suspect]
     Active Substance: SINTILIMAB
     Indication: Gastric cancer stage IV
     Dates: start: 20220419, end: 20220825

REACTIONS (2)
  - Myelosuppression [Unknown]
  - Gastrointestinal disorder [Unknown]

NARRATIVE: CASE EVENT DATE: 20220101
